FAERS Safety Report 20799525 (Version 2)
Quarter: 2022Q2

REPORT INFORMATION
  Report Type: Report from Study
  Country: US (occurrence: US)
  Receive Date: 20220509
  Receipt Date: 20220610
  Transmission Date: 20220721
  Serious: Yes (Death, Other)
  Sender: FDA-Public Use
  Company Number: US-ACADIA PHARMACEUTICALS INC.-ACA-2022-PIM-001554

PATIENT
  Age: 82 Year
  Sex: Male

DRUGS (7)
  1. NUPLAZID [Suspect]
     Active Substance: PIMAVANSERIN TARTRATE
     Indication: Parkinson^s disease
     Dosage: 34 MILLIGRAM, QD
     Route: 048
     Dates: start: 20220119, end: 20220412
  2. ASPIRIN [Concomitant]
     Active Substance: ASPIRIN
  3. SIMVASTATIN [Concomitant]
     Active Substance: SIMVASTATIN
  4. TRULICITY [Concomitant]
     Active Substance: DULAGLUTIDE
  5. BENAZEPRIL [Concomitant]
     Active Substance: BENAZEPRIL HYDROCHLORIDE
  6. CARVEDILOL [Concomitant]
     Active Substance: CARVEDILOL
  7. RASAGILINE [Concomitant]
     Active Substance: RASAGILINE
     Dosage: 1 MILLIGRAM

REACTIONS (1)
  - Sepsis [Recovered/Resolved]

NARRATIVE: CASE EVENT DATE: 20220411
